FAERS Safety Report 6688159-7 (Version None)
Quarter: 2010Q2

REPORT INFORMATION
  Report Type: 
  Country: None (occurrence: None)
  Receive Date: 20100420
  Receipt Date: 20100415
  Transmission Date: 20101027
  Serious: Yes (Death, Hospitalization)
  Sender: FDA-Public Use
  Company Number: JP-SANOFI-AVENTIS-2009SA008588

PATIENT
  Age: 64 Year
  Sex: Male
  Weight: 63 kg

DRUGS (11)
  1. PLAVIX [Suspect]
     Route: 048
     Dates: start: 20081213, end: 20090129
  2. ASPIRIN [Concomitant]
     Route: 048
     Dates: start: 20071119, end: 20090129
  3. NIZATIDINE [Concomitant]
     Indication: GASTRIC ULCER
     Route: 048
     Dates: end: 20090129
  4. DIOVANE [Concomitant]
     Route: 048
     Dates: end: 20090129
  5. AMLODIN [Concomitant]
     Route: 048
     Dates: end: 20090129
  6. ARTIST [Concomitant]
     Route: 048
     Dates: end: 20090129
  7. GOODMIN [Concomitant]
     Indication: INSOMNIA
     Route: 048
     Dates: end: 20090129
  8. DOXAZOSIN MESYLATE [Concomitant]
     Route: 048
     Dates: end: 20090129
  9. ALLOPURINOL [Concomitant]
     Indication: HYPERURICAEMIA
     Route: 048
     Dates: end: 20090129
  10. NITRODERM [Concomitant]
     Route: 062
     Dates: end: 20090129
  11. LIPITOR [Concomitant]
     Route: 048
     Dates: start: 20081216, end: 20090129

REACTIONS (2)
  - ACUTE MYOCARDIAL INFARCTION [None]
  - AORTIC DISSECTION [None]
